FAERS Safety Report 9349591 (Version 1)
Quarter: 2013Q2

REPORT INFORMATION
  Report Type: Spontaneous
  Country: GR (occurrence: None)
  Receive Date: 20130611
  Receipt Date: 20130611
  Transmission Date: 20140414
  Serious: Yes (Other)
  Sender: FDA-Public Use
  Company Number: GER/GER/13/0027685

PATIENT
  Age: 65 Year
  Sex: Female

DRUGS (3)
  1. CLOPIDOGREL (CLOPIDOGREL) [Suspect]
     Indication: PRODUCT USED FOR UNKNOWN INDICATION
  2. ASPIRIN (ACETYLSALICYLIC ACID) [Suspect]
     Indication: PRODUCT USED FOR UNKNOWN INDICATION
  3. ENOXAPARIN [Suspect]
     Route: 058

REACTIONS (9)
  - Atrial fibrillation [None]
  - Pericardial effusion [None]
  - Pericarditis [None]
  - Circulatory collapse [None]
  - Blood pressure systolic decreased [None]
  - Chest pain [None]
  - Pyrexia [None]
  - Coronary artery perforation [None]
  - Extravasation [None]
